FAERS Safety Report 5365709-4 (Version None)
Quarter: 2007Q2

REPORT INFORMATION
  Report Type: 
  Country: None (occurrence: None)
  Receive Date: 20070621
  Receipt Date: 20070612
  Transmission Date: 20071010
  Serious: Yes (Hospitalization)
  Sender: FDA-Public Use
  Company Number: US-GENENTECH-230330

PATIENT
  Sex: Male
  Weight: 88.888 kg

DRUGS (2)
  1. RITUXIMAB [Suspect]
     Indication: MULTIPLE SCLEROSIS
     Dosage: 2 G, Q24W
     Route: 042
     Dates: start: 20041117
  2. RITUXIMAB [Suspect]
     Dosage: 8000 MG, UNK

REACTIONS (1)
  - CHOLECYSTITIS ACUTE [None]
